FAERS Safety Report 5982374-3 (Version None)
Quarter: 2008Q4

REPORT INFORMATION
  Report Type: 
  Country: None (occurrence: None)
  Receive Date: 20081208
  Receipt Date: 20081126
  Transmission Date: 20090506
  Serious: Yes (Hospitalization)
  Sender: FDA-Public Use
  Company Number: US-BIOGENIDEC-2008BI032473

PATIENT
  Age: 39 Year
  Sex: Female

DRUGS (1)
  1. TYSABRI [Suspect]
     Indication: MULTIPLE SCLEROSIS
     Route: 042
     Dates: start: 20080122

REACTIONS (6)
  - COUGH [None]
  - DEPRESSED MOOD [None]
  - GAIT DISTURBANCE [None]
  - MENTAL IMPAIRMENT [None]
  - RAPID EYE MOVEMENTS SLEEP ABNORMAL [None]
  - VISUAL ACUITY REDUCED [None]
